FAERS Safety Report 24251764 (Version 3)
Quarter: 2024Q3

REPORT INFORMATION
  Report Type: Report from Study
  Country: US (occurrence: US)
  Receive Date: 20240827
  Receipt Date: 20240903
  Transmission Date: 20241017
  Serious: Yes (Death, Other)
  Sender: ROCHE
  Company Number: US-ROCHE-10000065868

PATIENT
  Age: 84 Year
  Sex: Male

DRUGS (7)
  1. ESBRIET [Suspect]
     Active Substance: PIRFENIDONE
     Indication: Interstitial lung disease
     Dosage: TAKE 3 CAPSULE(S) BY MOUTH EVERY MORNING AT NOON, AND EVERY EVENING WITH MEALS
     Route: 048
     Dates: start: 202308, end: 20240815
  2. ESBRIET [Suspect]
     Active Substance: PIRFENIDONE
     Indication: Idiopathic pulmonary fibrosis
  3. ROSUVASTATIN [Concomitant]
     Active Substance: ROSUVASTATIN\ROSUVASTATIN CALCIUM
     Dosage: 10 MG
     Route: 048
     Dates: start: 202209
  4. FAMOTIDINE [Concomitant]
     Active Substance: FAMOTIDINE
     Dosage: 40 MG TWICE A DAY,
     Route: 048
     Dates: start: 202402
  5. ASPIRIN [Concomitant]
     Active Substance: ASPIRIN
     Dosage: 81 MG ORAL TAB
     Route: 048
     Dates: start: 2014
  6. METAMUCIL [Concomitant]
     Active Substance: PLANTAGO SEED
     Dosage: 1 TEASPOON AT LUNCH AND DINNER
     Route: 048
     Dates: start: 2005
  7. TIMOLOL [Concomitant]
     Active Substance: TIMOLOL
     Indication: Glaucoma
     Dosage: 1 DROP EACH EYE AT BEDTIME
     Route: 047
     Dates: start: 2018

REACTIONS (2)
  - Death [Fatal]
  - Coma [Unknown]

NARRATIVE: CASE EVENT DATE: 20240822
